FAERS Safety Report 20135569 (Version 2)
Quarter: 2022Q1

REPORT INFORMATION
  Report Type: Spontaneous
  Country: US (occurrence: US)
  Receive Date: 20211201
  Receipt Date: 20220126
  Transmission Date: 20220423
  Serious: Yes (Hospitalization, Other)
  Sender: FDA-Public Use
  Company Number: US-PFIZER INC-202101619320

PATIENT
  Age: 73 Year
  Sex: Female
  Weight: 65.4 kg

DRUGS (4)
  1. ZOSYN [Suspect]
     Active Substance: PIPERACILLIN SODIUM\TAZOBACTAM SODIUM
     Indication: Urinary tract infection
     Dosage: 4.5 G (98 HOUR PROLONGED 4 HOUR INFUSION)
     Route: 042
     Dates: start: 20211109
  2. ZOSYN [Suspect]
     Active Substance: PIPERACILLIN SODIUM\TAZOBACTAM SODIUM
     Dosage: 4.5 G (FIRST DOSE AT 0609)
     Route: 042
  3. ZOSYN [Suspect]
     Active Substance: PIPERACILLIN SODIUM\TAZOBACTAM SODIUM
     Dosage: 4.5 G (SECOND DOSE AT 1258)
     Route: 042
     Dates: end: 20211109
  4. NOREPINEPHRINE [Concomitant]
     Active Substance: NOREPINEPHRINE
     Indication: Hypotension
     Dosage: UNK (4 HOURS)
     Dates: start: 20211109, end: 20211110

REACTIONS (24)
  - Septic shock [Unknown]
  - Anaphylactic reaction [Recovered/Resolved]
  - Respiratory distress [Recovering/Resolving]
  - Acute kidney injury [Recovering/Resolving]
  - Hyperbilirubinaemia [Unknown]
  - Chills [Unknown]
  - Tachycardia [Unknown]
  - Wheezing [Recovering/Resolving]
  - Stridor [Unknown]
  - Pain [Unknown]
  - Dysuria [Unknown]
  - Chromaturia [Unknown]
  - Pyrexia [Unknown]
  - Mental status changes [Unknown]
  - Tachypnoea [Unknown]
  - Confusional state [Unknown]
  - Dyspnoea [Unknown]
  - Diarrhoea [Unknown]
  - Hyponatraemia [Recovering/Resolving]
  - Platelet count decreased [Unknown]
  - Hypertension [Unknown]
  - Disease recurrence [Unknown]
  - Off label use [Unknown]
  - Incorrect drug administration rate [Unknown]

NARRATIVE: CASE EVENT DATE: 20211109
